FAERS Safety Report 7892743-2 (Version None)
Quarter: 2011Q4

REPORT INFORMATION
  Report Type: 
  Country: None (occurrence: None)
  Receive Date: 20111104
  Receipt Date: 20111021
  Transmission Date: 20120403
  Serious: Yes (Hospitalization, Other)
  Sender: FDA-Public Use
  Company Number: FI-AMGEN-FINSP2011055050

PATIENT
  Age: 65 Year
  Sex: Male

DRUGS (4)
  1. WARFARIN                           /00014802/ [Concomitant]
     Dosage: UNK
     Route: 048
     Dates: end: 20110101
  2. ENBREL [Suspect]
     Indication: RHEUMATOID ARTHRITIS
     Dosage: UNK
  3. WARFARIN                           /00014802/ [Concomitant]
     Dosage: UNK
     Dates: start: 20110701
  4. HUMIRA [Suspect]
     Indication: RHEUMATOID ARTHRITIS
     Dosage: UNK
     Dates: end: 20110701

REACTIONS (2)
  - PULMONARY EMBOLISM [None]
  - RENAL CANCER [None]
